FAERS Safety Report 6817865-6 (Version None)
Quarter: 2010Q3

REPORT INFORMATION
  Report Type: 
  Country: None (occurrence: None)
  Receive Date: 20100706
  Receipt Date: 20100623
  Transmission Date: 20110219
  Serious: Yes (Life-Threatening, Hospitalization)
  Sender: FDA-Public Use
  Company Number: US-MERCK-1005USA00663

PATIENT
  Age: 74 Year
  Sex: Male
  Weight: 79 kg

DRUGS (11)
  1. ZOLINZA [Suspect]
     Indication: MYCOSIS FUNGOIDES
     Route: 048
     Dates: start: 20100420, end: 20100501
  2. ASPIRIN [Concomitant]
     Route: 065
     Dates: start: 20100101, end: 20100504
  3. COUMADIN [Concomitant]
     Indication: DEEP VEIN THROMBOSIS
     Route: 065
     Dates: start: 20090101, end: 20100504
  4. ZOCOR [Concomitant]
     Route: 048
  5. OXYCONTIN [Concomitant]
     Route: 065
  6. INSULIN [Concomitant]
     Route: 065
  7. SYNTHROID [Concomitant]
     Route: 065
  8. NORCO [Concomitant]
     Dosage: 1 OR 2 TABLETS Q/6H
     Route: 065
  9. MORPHINE [Concomitant]
     Dosage: 0.5-2MG
     Route: 065
  10. TYLENOL [Concomitant]
     Dosage: 325 - 650MG Q/6H
     Route: 065
  11. ZOFRAN [Concomitant]
     Dosage: PRN
     Route: 065

REACTIONS (2)
  - DRUG INTERACTION [None]
  - GASTROINTESTINAL HAEMORRHAGE [None]
